FAERS Safety Report 6443755-7 (Version None)
Quarter: 2009Q4

REPORT INFORMATION
  Report Type: 
  Country: None (occurrence: None)
  Receive Date: 20091113
  Receipt Date: 20091021
  Transmission Date: 20100525
  Serious: Yes (Hospitalization)
  Sender: FDA-Public Use
  Company Number: 1-20554165

PATIENT
  Age: 73 Year
  Sex: Male

DRUGS (2)
  1. FENTANYL [Suspect]
     Dosage: TRANSDERMAL
     Route: 062
     Dates: end: 20090821
  2. OXYCODONE HCL [Suspect]
     Dosage: ORAL
     Route: 048
     Dates: end: 20090821

REACTIONS (3)
  - CONFUSIONAL STATE [None]
  - HALLUCINATION [None]
  - INCORRECT DOSE ADMINISTERED [None]
